FAERS Safety Report 14009194 (Version 2)
Quarter: 2017Q4

REPORT INFORMATION
  Report Type: Spontaneous
  Country: AU (occurrence: AU)
  Receive Date: 20170925
  Receipt Date: 20171016
  Transmission Date: 20180321
  Serious: Yes (Other)
  Sender: FDA-Public Use
  Company Number: PHHY2017AU139743

PATIENT
  Sex: Female

DRUGS (2)
  1. METARAMINOL SANDOZ [Suspect]
     Active Substance: METARAMINOL BITARTRATE
     Indication: PRODUCT USED FOR UNKNOWN INDICATION
     Dosage: 0.5MG/ML (6ML)
     Route: 065
     Dates: start: 201709
  2. ROCURONIUM BROMIDE. [Suspect]
     Active Substance: ROCURONIUM BROMIDE
     Indication: PRODUCT USED FOR UNKNOWN INDICATION
     Dosage: 10 MG/ML (5MLS)
     Route: 065
     Dates: start: 201709

REACTIONS (3)
  - Product packaging confusion [Unknown]
  - Wrong drug administered [Unknown]
  - Maternal exposure during pregnancy [Unknown]

NARRATIVE: CASE EVENT DATE: 201709
